FAERS Safety Report 25019979 (Version 2)
Quarter: 2025Q3

REPORT INFORMATION
  Report Type: Report from Study
  Country: US (occurrence: US)
  Receive Date: 20250227
  Receipt Date: 20250803
  Transmission Date: 20251021
  Serious: Yes (Hospitalization, Other)
  Sender: ALEXION PHARMACEUTICALS
  Company Number: US-ALXN-A202300135AA

PATIENT
  Age: 16 Year
  Sex: Male

DRUGS (2)
  1. STRENSIQ [Suspect]
     Active Substance: ASFOTASE ALFA
     Indication: Hypophosphatasia
     Dosage: 146 MILLIGRAM, TIW
     Dates: start: 20221212
  2. MOTRIN [Concomitant]
     Active Substance: IBUPROFEN
     Dosage: UNK, Q6H
     Route: 065

REACTIONS (19)
  - Carditis [Unknown]
  - Cardiomyopathy [Unknown]
  - Chest pain [Unknown]
  - Troponin increased [Recovering/Resolving]
  - Attention deficit hyperactivity disorder [Unknown]
  - Anxiety [Unknown]
  - Hyperhidrosis [Unknown]
  - Urticaria [Unknown]
  - Injection site pain [Unknown]
  - Injection site swelling [Unknown]
  - Injection site scar [Unknown]
  - Injection site reaction [Unknown]
  - Injection site erythema [Unknown]
  - Injection site urticaria [Unknown]
  - Inappropriate schedule of product administration [Unknown]
  - Pain [Unknown]
  - Feeling abnormal [Unknown]
  - Haemochromatosis [Not Recovered/Not Resolved]
  - Joint injury [Recovered/Resolved with Sequelae]

NARRATIVE: CASE EVENT DATE: 20230506
